FAERS Safety Report 25174889 (Version 1)
Quarter: 2025Q2

REPORT INFORMATION
  Report Type: Spontaneous
  Country: PL (occurrence: PL)
  Receive Date: 20250408
  Receipt Date: 20250408
  Transmission Date: 20250717
  Serious: Yes (Hospitalization)
  Sender: MYLAN
  Company Number: None

PATIENT
  Age: 17 Year
  Sex: Female
  Weight: 80 kg

DRUGS (12)
  1. ZOLOFT [Suspect]
     Active Substance: SERTRALINE HYDROCHLORIDE
     Indication: Depression
     Dosage: 2 DOSAGE FORM, QD,NO INFORMATION ON HOW MUCH OF THE DRUG TAKEN
  2. ZOLOFT [Suspect]
     Active Substance: SERTRALINE HYDROCHLORIDE
     Dosage: 2 DOSAGE FORM, QD,NO INFORMATION ON HOW MUCH OF THE DRUG TAKEN
     Route: 065
  3. ZOLOFT [Suspect]
     Active Substance: SERTRALINE HYDROCHLORIDE
     Dosage: 2 DOSAGE FORM, QD,NO INFORMATION ON HOW MUCH OF THE DRUG TAKEN
     Route: 065
  4. ZOLOFT [Suspect]
     Active Substance: SERTRALINE HYDROCHLORIDE
     Dosage: 2 DOSAGE FORM, QD,NO INFORMATION ON HOW MUCH OF THE DRUG TAKEN
  5. LAMOTRIGINE [Suspect]
     Active Substance: LAMOTRIGINE
     Indication: Product used for unknown indication
     Dosage: 25 MILLIGRAM, BID, NO INFORMATION ON HOW MUCH OF THE DRUG WAS TAKEN
  6. LAMOTRIGINE [Suspect]
     Active Substance: LAMOTRIGINE
     Dosage: 25 MILLIGRAM, BID, NO INFORMATION ON HOW MUCH OF THE DRUG WAS TAKEN
     Route: 065
  7. LAMOTRIGINE [Suspect]
     Active Substance: LAMOTRIGINE
     Dosage: 25 MILLIGRAM, BID, NO INFORMATION ON HOW MUCH OF THE DRUG WAS TAKEN
     Route: 065
  8. LAMOTRIGINE [Suspect]
     Active Substance: LAMOTRIGINE
     Dosage: 25 MILLIGRAM, BID, NO INFORMATION ON HOW MUCH OF THE DRUG WAS TAKEN
  9. ESZOPICLONE [Suspect]
     Active Substance: ESZOPICLONE
     Indication: Product used for unknown indication
     Dosage: UNK, QD, IN THE EVENING,NO INFORMATION ON HOW MUCH OF THE DRUG WAS TAKEN
  10. ESZOPICLONE [Suspect]
     Active Substance: ESZOPICLONE
     Dosage: UNK, QD, IN THE EVENING,NO INFORMATION ON HOW MUCH OF THE DRUG WAS TAKEN
     Route: 065
  11. ESZOPICLONE [Suspect]
     Active Substance: ESZOPICLONE
     Dosage: UNK, QD, IN THE EVENING,NO INFORMATION ON HOW MUCH OF THE DRUG WAS TAKEN
     Route: 065
  12. ESZOPICLONE [Suspect]
     Active Substance: ESZOPICLONE
     Dosage: UNK, QD, IN THE EVENING,NO INFORMATION ON HOW MUCH OF THE DRUG WAS TAKEN

REACTIONS (8)
  - Poisoning deliberate [Recovered/Resolved]
  - Toxicity to various agents [Recovered/Resolved]
  - Vomiting [Recovered/Resolved]
  - Altered state of consciousness [Recovered/Resolved]
  - Loss of consciousness [Recovered/Resolved]
  - Restlessness [Recovered/Resolved]
  - Dizziness [Recovered/Resolved]
  - Decreased appetite [Recovered/Resolved]

NARRATIVE: CASE EVENT DATE: 20231201
